FAERS Safety Report 11312858 (Version 1)
Quarter: 2015Q3

REPORT INFORMATION
  Report Type: Spontaneous
  Country: US (occurrence: US)
  Receive Date: 20150727
  Receipt Date: 20150727
  Transmission Date: 20151125
  Serious: No
  Sender: FDA-Public Use
  Company Number: US-ABBVIE-15P-163-1358771-00

PATIENT
  Age: 23 Year
  Sex: Female

DRUGS (8)
  1. PLEXUS [Concomitant]
     Route: 065
  2. SYNTHROID [Suspect]
     Active Substance: LEVOTHYROXINE SODIUM
     Dosage: 50 MG
     Route: 065
  3. PROBIO5 [Concomitant]
     Dosage: 4
     Route: 065
  4. PLEXUS [Concomitant]
     Indication: PRODUCT USED FOR UNKNOWN INDICATION
     Route: 065
  5. PROBIO5 [Concomitant]
     Indication: PRODUCT USED FOR UNKNOWN INDICATION
     Dosage: 2
     Route: 065
  6. SYNTHROID [Suspect]
     Active Substance: LEVOTHYROXINE SODIUM
     Indication: HYPOTHYROIDISM
     Dosage: 100 MG
     Route: 065
  7. BIO CLEANSE [Concomitant]
     Indication: PRODUCT USED FOR UNKNOWN INDICATION
     Dosage: 2
     Route: 065
  8. CYTOMEL [Concomitant]
     Active Substance: LIOTHYRONINE SODIUM
     Indication: PRODUCT USED FOR UNKNOWN INDICATION
     Route: 065

REACTIONS (13)
  - Loss of consciousness [Unknown]
  - Feeling abnormal [Unknown]
  - Temperature intolerance [Unknown]
  - Weight increased [Not Recovered/Not Resolved]
  - Unevaluable event [Unknown]
  - Autoimmune thyroiditis [Unknown]
  - Pain [Recovered/Resolved]
  - Blood thyroid stimulating hormone decreased [Unknown]
  - Fatigue [Unknown]
  - Alopecia [Unknown]
  - Hypertension [Unknown]
  - Anti-thyroid antibody positive [Unknown]
  - Headache [Recovered/Resolved]
